FAERS Safety Report 8438545-X (Version None)
Quarter: 2012Q2

REPORT INFORMATION
  Report Type: 
  Country: None (occurrence: None)
  Receive Date: 20120615
  Receipt Date: 20120607
  Transmission Date: 20120825
  Serious: Yes (Other)
  Sender: FDA-Public Use
  Company Number: GB-GE HEALTHCARE MEDICAL DIAGNOSTICS-OMPQ-NO-1206L-0574

PATIENT
  Age: 52 Year
  Sex: Female

DRUGS (4)
  1. OMNIPAQUE 140 [Suspect]
     Indication: METASTASES TO LIVER
  2. OMNIPAQUE 140 [Suspect]
     Indication: COLON CANCER
     Route: 042
  3. IOPAMIDOL [Suspect]
     Indication: COLON CANCER
     Route: 042
     Dates: end: 19980101
  4. IOPAMIDOL [Suspect]
     Indication: METASTASES TO LIVER
     Route: 042

REACTIONS (1)
  - PSORIASIS [None]
